FAERS Safety Report 19468895 (Version 1)
Quarter: 2021Q2

REPORT INFORMATION
  Report Type: Spontaneous
  Country: US (occurrence: US)
  Receive Date: 20210628
  Receipt Date: 20210628
  Transmission Date: 20210717
  Serious: Yes (Other)
  Sender: FDA-Public Use
  Company Number: US-ENDO PHARMACEUTICALS INC-2021-003216

PATIENT
  Age: 67 Year
  Sex: Female

DRUGS (3)
  1. RANITIDINE. [Suspect]
     Active Substance: RANITIDINE
     Indication: GASTRIC BYPASS
     Dosage: UNK UNKNOWN, DAILY
     Route: 065
     Dates: start: 198910, end: 201809
  2. RANITIDINE HYDROCHLORIDE. [Suspect]
     Active Substance: RANITIDINE HYDROCHLORIDE
     Indication: GASTRIC BYPASS
     Dosage: UNK UNKNOWN, DAILY
     Route: 065
     Dates: start: 198910, end: 201801
  3. RANITIDINE. [Suspect]
     Active Substance: RANITIDINE
     Indication: GASTRIC BYPASS
     Dosage: UNK UNKNOWN, DAILY
     Route: 065
     Dates: start: 198910, end: 201801

REACTIONS (1)
  - Breast cancer [Unknown]

NARRATIVE: CASE EVENT DATE: 20151001
